FAERS Safety Report 7139452-5 (Version None)
Quarter: 2010Q4

REPORT INFORMATION
  Report Type: 
  Country: None (occurrence: None)
  Receive Date: 20101206
  Receipt Date: 20101130
  Transmission Date: 20110411
  Serious: Yes (Hospitalization, Congenital Anomaly, Other)
  Sender: FDA-Public Use
  Company Number: US-PFIZER INC-2010092573

PATIENT
  Sex: Male

DRUGS (1)
  1. ZOLOFT [Suspect]
     Dosage: 150 MG, UNK
     Route: 064

REACTIONS (20)
  - ASTHMA [None]
  - ATELECTASIS NEONATAL [None]
  - BRONCHOPNEUMONIA [None]
  - CARDIOMEGALY [None]
  - CHRONIC SINUSITIS [None]
  - CLEFT LIP AND PALATE [None]
  - DEAFNESS [None]
  - DRUG EXPOSURE DURING PREGNANCY [None]
  - ENURESIS [None]
  - EUSTACHIAN TUBE DYSFUNCTION [None]
  - HYPOVOLAEMIA [None]
  - OTITIS MEDIA [None]
  - PHARYNGITIS [None]
  - RESPIRATORY DISTRESS [None]
  - SKIN PAPILLOMA [None]
  - SLEEP APNOEA SYNDROME [None]
  - SPEECH DISORDER [None]
  - TACHYPNOEA [None]
  - UPPER RESPIRATORY TRACT INFECTION [None]
  - VELOPHARYNGEAL INCOMPETENCE [None]
